FAERS Safety Report 4915778-8 (Version None)
Quarter: 2006Q1

REPORT INFORMATION
  Report Type: 
  Country: None (occurrence: None)
  Receive Date: 20060217
  Receipt Date: 20051005
  Transmission Date: 20060701
  Serious: Yes (Hospitalization, Other)
  Sender: FDA-Public Use
  Company Number: ES-BRISTOL-MYERS SQUIBB COMPANY-13133137

PATIENT
  Age: 60 Year
  Sex: Female

DRUGS (8)
  1. PRAVACHOL [Suspect]
     Indication: MYOCARDIAL INFARCTION
     Dates: start: 20031130, end: 20050801
  2. NORVASC [Concomitant]
     Dates: start: 20030101, end: 20050801
  3. TRAMADOL [Concomitant]
  4. BRUFEN [Concomitant]
  5. CIPRAMIL [Concomitant]
     Dates: start: 20040101
  6. SOBRIL [Concomitant]
  7. LOSEC MUPS [Concomitant]
  8. LEVAXIN [Concomitant]

REACTIONS (16)
  - ABDOMINAL PAIN [None]
  - BLOOD URINE PRESENT [None]
  - CONJUNCTIVAL HAEMORRHAGE [None]
  - EAR DISCOMFORT [None]
  - FATIGUE [None]
  - GASTROINTESTINAL HAEMORRHAGE [None]
  - HAEMORRHAGE [None]
  - HEADACHE [None]
  - HYPERHIDROSIS [None]
  - LYMPHADENOPATHY [None]
  - MYALGIA [None]
  - PAIN [None]
  - SWELLING FACE [None]
  - SYNCOPE [None]
  - VISUAL DISTURBANCE [None]
  - WHITE BLOOD CELL COUNT INCREASED [None]
